FAERS Safety Report 7253877-9 (Version None)
Quarter: 2011Q1

REPORT INFORMATION
  Report Type: 
  Country: None (occurrence: None)
  Receive Date: 20110129
  Receipt Date: 20100426
  Transmission Date: 20110831
  Serious: No
  Sender: FDA-Public Use
  Company Number: US-ABBOTT-10P-163-0640894-00

PATIENT
  Sex: Female
  Weight: 92.616 kg

DRUGS (7)
  1. UNKNOWN DIABETES MEDICATION [Concomitant]
     Indication: DIABETES MELLITUS
     Route: 048
  2. HUMIRA [Suspect]
     Route: 058
     Dates: start: 20100201
  3. HUMIRA [Suspect]
     Indication: PSORIASIS
     Dosage: ONCE, 1ST LOADING DOSE
     Route: 058
     Dates: start: 20100202, end: 20100202
  4. IBUPROFEN [Concomitant]
     Indication: PRODUCT USED FOR UNKNOWN INDICATION
  5. METFORMIN [Concomitant]
     Indication: DIABETES MELLITUS
     Route: 048
  6. VICODIN [Concomitant]
     Indication: PRODUCT USED FOR UNKNOWN INDICATION
  7. BIRTH CONTROL [Concomitant]
     Indication: PRODUCT USED FOR UNKNOWN INDICATION

REACTIONS (4)
  - VOMITING [None]
  - NAUSEA [None]
  - HEADACHE [None]
  - FEELING ABNORMAL [None]
